FAERS Safety Report 22376539 (Version 1)
Quarter: 2023Q2

REPORT INFORMATION
  Report Type: Spontaneous
  Country: US (occurrence: US)
  Receive Date: 20230528
  Receipt Date: 20230528
  Transmission Date: 20230721
  Serious: Yes (Other)
  Sender: FDA-Public Use
  Company Number: US-drreddys-SPO/USA/23/0165446

PATIENT
  Sex: Male

DRUGS (2)
  1. CIPROFLOXACIN [Suspect]
     Active Substance: CIPROFLOXACIN
     Indication: Product used for unknown indication
  2. LISINOPRIL [Suspect]
     Active Substance: LISINOPRIL
     Indication: Product used for unknown indication

REACTIONS (14)
  - Neuropathy peripheral [Unknown]
  - Muscle spasms [Unknown]
  - Brain fog [Unknown]
  - Disturbance in attention [Unknown]
  - Hyperreflexia [Unknown]
  - Fatigue [Unknown]
  - Chest pain [Unknown]
  - Gait disturbance [Unknown]
  - Insomnia [Unknown]
  - Memory impairment [Unknown]
  - Arthralgia [Unknown]
  - Tendon pain [Unknown]
  - Depression [Unknown]
  - Anxiety [Unknown]
